FAERS Safety Report 10914120 (Version 1)
Quarter: 2015Q1

REPORT INFORMATION
  Report Type: Spontaneous
  Country: US (occurrence: None)
  Receive Date: 20150310
  Receipt Date: 20150310
  Transmission Date: 20150721
  Serious: Yes (Hospitalization)
  Sender: FDA-Public Use
  Company Number: US-H14001-15-00341

PATIENT
  Age: 62 Year
  Sex: Male

DRUGS (6)
  1. PROMETHAZINE [Suspect]
     Active Substance: PROMETHAZINE\PROMETHAZINE HYDROCHLORIDE
     Indication: VOMITING
     Route: 042
  2. FLUIDS (BARIUM SULFATE) [Concomitant]
  3. PROMETHAZINE [Suspect]
     Active Substance: PROMETHAZINE\PROMETHAZINE HYDROCHLORIDE
     Indication: ARTHROPOD BITE
     Route: 042
  4. PROMETHAZINE [Suspect]
     Active Substance: PROMETHAZINE\PROMETHAZINE HYDROCHLORIDE
     Indication: NAUSEA
     Route: 042
  5. ANTIPYRETICS (OTHER THERAPEUTIC PRODUCTS) [Concomitant]
  6. PROMETHAZINE [Suspect]
     Active Substance: PROMETHAZINE\PROMETHAZINE HYDROCHLORIDE
     Indication: PYREXIA
     Route: 042

REACTIONS (17)
  - Pyrexia [None]
  - Confusional state [None]
  - Agitation [None]
  - Nystagmus [None]
  - Toxicity to various agents [None]
  - Cerebellar syndrome [None]
  - Mydriasis [None]
  - Blood creatine phosphokinase increased [None]
  - Dysarthria [None]
  - Hallucination, visual [None]
  - Disorientation [None]
  - Dyskinesia [None]
  - Ataxia [None]
  - Extensor plantar response [None]
  - Leukocytosis [None]
  - Blood pressure decreased [None]
  - Accidental overdose [None]
